FAERS Safety Report 23403268 (Version 1)
Quarter: 2024Q1

REPORT INFORMATION
  Report Type: Spontaneous
  Country: IN (occurrence: IN)
  Receive Date: 20240116
  Receipt Date: 20240116
  Transmission Date: 20240410
  Serious: No
  Sender: FDA-Public Use
  Company Number: IN-ALKEM LABORATORIES LIMITED-IN-ALKEM-2023-11620

PATIENT
  Age: 60 Year
  Sex: Male

DRUGS (3)
  1. CAPECITABINE [Suspect]
     Active Substance: CAPECITABINE
     Indication: Metastatic gastric cancer
     Dosage: 1000 MILLIGRAM/SQ. METER, BID (TWICE A DAY FOR 14 DAYS WITH 1 WEEK BREAK)
     Route: 065
  2. BEVACIZUMAB [Suspect]
     Active Substance: BEVACIZUMAB
     Indication: Metastatic gastric cancer
     Dosage: 7.5 MILLIGRAM/SQ. METER (3 WEEKLY)
     Route: 065
  3. OXALIPLATIN [Suspect]
     Active Substance: OXALIPLATIN
     Indication: Metastatic gastric cancer
     Dosage: 100 MILLIGRAM/SQ. METER (3 WEEKLY)
     Route: 065

REACTIONS (1)
  - Therapy partial responder [Unknown]
